FAERS Safety Report 25284395 (Version 5)
Quarter: 2025Q4

REPORT INFORMATION
  Report Type: Report from Study
  Country: US (occurrence: None)
  Receive Date: 20250508
  Receipt Date: 20251201
  Transmission Date: 20260117
  Serious: Yes (Hospitalization, Other)
  Sender: UCB
  Company Number: US-UCBSA-2025026472

PATIENT
  Age: 66 Year
  Weight: 69.5 kg

DRUGS (9)
  1. ZILUCOPLAN [Suspect]
     Active Substance: ZILUCOPLAN
     Indication: Myasthenia gravis
     Dosage: 23 MILLIGRAM, ONCE DAILY (QD)
  2. ZILUCOPLAN [Suspect]
     Active Substance: ZILUCOPLAN
     Dosage: 23 MILLIGRAM, ONCE DAILY (QD)
  3. MENINGOCOCCAL VACCINE NOS [Suspect]
     Active Substance: MENINGOCOCCAL VACCINE
     Indication: Prophylaxis
     Dosage: UNK
  4. PYRIDOSTIGMINE [Concomitant]
     Active Substance: PYRIDOSTIGMINE
     Indication: Product used for unknown indication
  5. VITAMINS [Concomitant]
     Active Substance: VITAMINS
     Indication: Product used for unknown indication
  6. PREDNISONE [Concomitant]
     Active Substance: PREDNISONE
     Indication: Product used for unknown indication
  7. SOLIRIS [Concomitant]
     Active Substance: ECULIZUMAB
     Indication: Product used for unknown indication
  8. BENADRYL [Concomitant]
     Active Substance: DIPHENHYDRAMINE HYDROCHLORIDE
     Indication: Pruritus
     Dosage: AS NEEDED
  9. BACTRIM [Concomitant]
     Active Substance: SULFAMETHOXAZOLE\TRIMETHOPRIM
     Indication: Product used for unknown indication

REACTIONS (11)
  - Adverse drug reaction [Recovering/Resolving]
  - Surgery [Recovering/Resolving]
  - Pneumonia [Recovering/Resolving]
  - Influenza [Unknown]
  - Injection site urticaria [Unknown]
  - Central venous catheterisation [Recovering/Resolving]
  - Apheresis [Recovering/Resolving]
  - Dyspepsia [Unknown]
  - Urinary tract infection [Unknown]
  - Product dose omission issue [Unknown]
  - Syringe issue [Unknown]
